FAERS Safety Report 23310178 (Version 1)
Quarter: 2023Q4

REPORT INFORMATION
  Report Type: Spontaneous
  Country: US (occurrence: None)
  Receive Date: 20231218
  Receipt Date: 20231218
  Transmission Date: 20240110
  Serious: Yes (Hospitalization)
  Sender: FDA-Public Use
  Company Number: None

PATIENT
  Sex: Female

DRUGS (2)
  1. DIPHENHYDRAMINE [Suspect]
     Active Substance: DIPHENHYDRAMINE
     Indication: Premedication
     Dosage: 25-50MG EVERY 4 TO 6 HOURS BY MOUTH?
     Route: 048
     Dates: start: 202212
  2. CUVITRU [Concomitant]
     Active Substance: HUMAN IMMUNOGLOBULIN G

REACTIONS (7)
  - Fall [None]
  - Lower limb fracture [None]
  - Wound [None]
  - Scab [None]
  - Blister [None]
  - Skin ulcer [None]
  - Wound complication [None]
